FAERS Safety Report 8411973-4 (Version None)
Quarter: 2012Q2

REPORT INFORMATION
  Report Type: 
  Country: None (occurrence: None)
  Receive Date: 20120605
  Receipt Date: 20120525
  Transmission Date: 20120825
  Serious: Yes (Hospitalization)
  Sender: FDA-Public Use
  Company Number: DE-GILEAD-2012-0055589

PATIENT
  Sex: Female

DRUGS (2)
  1. TENOFOVIR DISOPROXIL FUMARATE [Suspect]
     Indication: HEPATITIS B
     Dosage: 300 MG, QD
     Route: 048
     Dates: start: 20120402
  2. PEGINTERFERON ALFA-2A [Suspect]
     Indication: HEPATITIS B
     Dosage: 1 DF, Q1WK
     Route: 058
     Dates: start: 20120402

REACTIONS (1)
  - HAEMATEMESIS [None]
